FAERS Safety Report 9550355 (Version 17)
Quarter: 2018Q4

REPORT INFORMATION
  Report Type: Report from Study
  Country: US (occurrence: US)
  Receive Date: 20130924
  Receipt Date: 20181210
  Transmission Date: 20190205
  Serious: Yes (Hospitalization, Other)
  Sender: FDA-Public Use
  Company Number: US-SANOFI-AVENTIS-2013SA075694

PATIENT
  Age: 52 Year
  Sex: Female

DRUGS (7)
  1. TERIFLUNOMIDE. [Suspect]
     Active Substance: TERIFLUNOMIDE
     Dosage: UNK
     Route: 048
     Dates: start: 200906, end: 201202
  2. TERIFLUNOMIDE. [Suspect]
     Active Substance: TERIFLUNOMIDE
     Indication: MULTIPLE SCLEROSIS
     Dosage: 14 MG,QD
     Route: 048
     Dates: start: 200904
  3. TERIFLUNOMIDE. [Suspect]
     Active Substance: TERIFLUNOMIDE
     Dosage: UNK UNK, QD
     Route: 048
     Dates: start: 20120201
  4. TERIFLUNOMIDE. [Suspect]
     Active Substance: TERIFLUNOMIDE
     Dosage: 14 MG,QD
     Route: 048
     Dates: start: 201604
  5. TERIFLUNOMIDE. [Suspect]
     Active Substance: TERIFLUNOMIDE
     Dosage: 14 MG,QD
     Route: 048
     Dates: start: 201404, end: 20140516
  6. TERIFLUNOMIDE. [Suspect]
     Active Substance: TERIFLUNOMIDE
     Dosage: 14 MG,QD
     Route: 048
     Dates: start: 20130607
  7. TERIFLUNOMIDE. [Suspect]
     Active Substance: TERIFLUNOMIDE
     Dosage: 14 MG,QD
     Route: 048

REACTIONS (48)
  - Urinary tract infection [Recovered/Resolved]
  - Urinary incontinence [Not Recovered/Not Resolved]
  - Sepsis [Not Recovered/Not Resolved]
  - Infection [Unknown]
  - Road traffic accident [Unknown]
  - Influenza like illness [Unknown]
  - Rhinorrhoea [Unknown]
  - Nasopharyngitis [Unknown]
  - Jaw disorder [Unknown]
  - Kidney infection [Not Recovered/Not Resolved]
  - Pyrexia [Unknown]
  - Sneezing [Unknown]
  - Paraesthesia [Unknown]
  - Musculoskeletal discomfort [Unknown]
  - Blood pressure decreased [Unknown]
  - Wound infection [Recovering/Resolving]
  - Pain [Unknown]
  - Product dose omission [Unknown]
  - Hypotension [Recovered/Resolved]
  - Ligament sprain [Unknown]
  - Condition aggravated [Not Recovered/Not Resolved]
  - Joint injury [Not Recovered/Not Resolved]
  - Alopecia [Unknown]
  - Diarrhoea [Not Recovered/Not Resolved]
  - Nephrolithiasis [Not Recovered/Not Resolved]
  - Limb injury [Unknown]
  - Nephrolithiasis [Recovered/Resolved]
  - Facial pain [Recovered/Resolved]
  - Unevaluable event [Unknown]
  - Weight bearing difficulty [Unknown]
  - Dizziness [Unknown]
  - Muscle spasms [Unknown]
  - Fatigue [Unknown]
  - Oral pain [Recovering/Resolving]
  - Nausea [Recovered/Resolved]
  - Intervertebral disc protrusion [Not Recovered/Not Resolved]
  - Musculoskeletal pain [Unknown]
  - Fall [Recovered/Resolved]
  - Tremor [Not Recovered/Not Resolved]
  - Back pain [Not Recovered/Not Resolved]
  - Contusion [Not Recovered/Not Resolved]
  - Loss of consciousness [Not Recovered/Not Resolved]
  - Gait disturbance [Unknown]
  - Pain [Recovered/Resolved]
  - Constipation [Not Recovered/Not Resolved]
  - Trigeminal neuralgia [Recovering/Resolving]
  - Sensitivity of teeth [Recovering/Resolving]
  - Balance disorder [Not Recovered/Not Resolved]

NARRATIVE: CASE EVENT DATE: 2013
